FAERS Safety Report 18229743 (Version 1)
Quarter: 2020Q3

REPORT INFORMATION
  Report Type: Spontaneous
  Country: JP (occurrence: BR)
  Receive Date: 20200903
  Receipt Date: 20200903
  Transmission Date: 20201103
  Serious: Yes (Hospitalization)
  Sender: FDA-Public Use
  Company Number: BR-ELI_LILLY_AND_COMPANY-BR202009000052

PATIENT
  Sex: Male

DRUGS (8)
  1. NATRILIX [INDAPAMIDE] [Concomitant]
     Indication: BLOOD PRESSURE MANAGEMENT
     Dosage: 1 DOSAGE FORM, DAILY
     Route: 065
  2. NEBILET [Concomitant]
     Active Substance: NEBIVOLOL
     Indication: HEART RATE
     Dosage: 5 MG, UNK
     Route: 065
  3. EFFIENT [Suspect]
     Active Substance: PRASUGREL HYDROCHLORIDE
     Indication: STENT PLACEMENT
     Dosage: 10 MG, DAILY
     Route: 048
     Dates: start: 2016, end: 201904
  4. LOTAR [LOSARTAN POTASSIUM] [Concomitant]
     Indication: BLOOD PRESSURE MANAGEMENT
     Dosage: 5/50 MG
     Route: 065
  5. EFFIENT [Suspect]
     Active Substance: PRASUGREL HYDROCHLORIDE
     Dosage: 10 MG, DAILY
     Route: 048
     Dates: start: 201904, end: 201905
  6. EFFIENT [Suspect]
     Active Substance: PRASUGREL HYDROCHLORIDE
     Dosage: 10 MG, DAILY
     Route: 048
     Dates: start: 201905
  7. LIPITOR [Concomitant]
     Active Substance: ATORVASTATIN CALCIUM
     Indication: BLOOD CHOLESTEROL
     Dosage: 1 DOSAGE FORM, DAILY
     Route: 065
  8. VASTAREL [Concomitant]
     Active Substance: TRIMETAZIDINE DIHYDROCHLORIDE
     Indication: CARDIOVASCULAR DISORDER
     Dosage: 35 MG, UNK
     Route: 065

REACTIONS (1)
  - Prostatic disorder [Recovered/Resolved]

NARRATIVE: CASE EVENT DATE: 2019
